FAERS Safety Report 17089969 (Version 1)
Quarter: 2019Q4

REPORT INFORMATION
  Report Type: Spontaneous
  Country: US (occurrence: US)
  Receive Date: 20191129
  Receipt Date: 20191129
  Transmission Date: 20200122
  Serious: No
  Sender: FDA-Public Use
  Company Number: US-009507513-1911USA011343

PATIENT
  Sex: Female

DRUGS (2)
  1. EMEND [Suspect]
     Active Substance: APREPITANT
     Indication: PROPHYLAXIS OF NAUSEA AND VOMITING
     Dosage: UNK
     Route: 042
  2. EMEND [Suspect]
     Active Substance: APREPITANT
     Dosage: UNK
     Route: 042

REACTIONS (2)
  - Back pain [Recovered/Resolved]
  - Dyspnoea [Recovered/Resolved]
